FAERS Safety Report 8195926-X (Version None)
Quarter: 2012Q1

REPORT INFORMATION
  Report Type: 
  Country: None (occurrence: None)
  Receive Date: 20120308
  Receipt Date: 20120224
  Transmission Date: 20120608
  Serious: Yes (Other)
  Sender: FDA-Public Use
  Company Number: GB-MYLANLABS-2012S1004467

PATIENT
  Sex: Male

DRUGS (1)
  1. KETAMINE HCL [Suspect]
     Indication: DRUG ABUSE
     Dosage: APPROXIMATELY 1 G/DAY
     Route: 065

REACTIONS (3)
  - METAPLASIA [None]
  - DRUG ABUSE [None]
  - CYSTITIS [None]
